FAERS Safety Report 8132497-8 (Version None)
Quarter: 2012Q1

REPORT INFORMATION
  Report Type: 
  Country: None (occurrence: None)
  Receive Date: 20120213
  Receipt Date: 20120202
  Transmission Date: 20120608
  Serious: Yes (Other)
  Sender: FDA-Public Use
  Company Number: DE-BRISTOL-MYERS SQUIBB COMPANY-16384554

PATIENT
  Sex: Male

DRUGS (1)
  1. ABILIFY [Suspect]
     Indication: SCHIZOPHRENIA

REACTIONS (2)
  - ATRIAL FIBRILLATION [None]
  - CARDIAC DISORDER [None]
